FAERS Safety Report 7019658-6 (Version None)
Quarter: 2010Q3

REPORT INFORMATION
  Report Type: 
  Country: None (occurrence: None)
  Receive Date: 20100929
  Receipt Date: 20100903
  Transmission Date: 20110219
  Serious: Yes (Other)
  Sender: FDA-Public Use
  Company Number: PHEH2004US06622

PATIENT

DRUGS (17)
  1. AREDIA [Suspect]
     Dosage: UNK
     Dates: start: 20000307, end: 20020101
  2. ZOMETA [Suspect]
     Indication: BREAST CANCER METASTATIC
     Dosage: 4 MG EVERY 4 WEEKS
     Route: 042
     Dates: start: 20020618
  3. AMARYL [Concomitant]
  4. PRINZIDE [Concomitant]
  5. AROMASIN [Concomitant]
     Indication: BREAST CANCER METASTATIC
     Dosage: 25 MG, QD
     Route: 048
     Dates: start: 20010201
  6. XYLOCAIN GEL [Concomitant]
     Indication: LOCAL ANAESTHESIA
     Dates: start: 20040223, end: 20040223
  7. XYLOCAIN GEL [Concomitant]
     Dates: start: 20040322, end: 20040322
  8. CALCIUM FOLINATE [Concomitant]
     Dates: start: 19940101
  9. TAMOXIFEN CITRATE [Concomitant]
  10. CARVEDIL [Concomitant]
  11. FLAGYL [Concomitant]
  12. PENICILLIN [Concomitant]
  13. NOTUSS [Concomitant]
  14. HYDROCODONE [Concomitant]
  15. NEURONTIN [Concomitant]
  16. LISINOPRIL [Concomitant]
  17. VERAPAMIL [Concomitant]

REACTIONS (26)
  - ACROCHORDON [None]
  - ACTINIC KERATOSIS [None]
  - ALVEOLAR OSTEITIS [None]
  - ANHEDONIA [None]
  - ANXIETY [None]
  - ARTHRALGIA [None]
  - BIOPSY [None]
  - BONE DEBRIDEMENT [None]
  - BONE DISORDER [None]
  - CARDIAC FLUTTER [None]
  - DENTAL CARIES [None]
  - DRY MOUTH [None]
  - GRAM STAIN POSITIVE [None]
  - IMPAIRED HEALING [None]
  - INJURY [None]
  - METASTASES TO BONE [None]
  - OSTEONECROSIS OF JAW [None]
  - PAIN [None]
  - PAIN IN JAW [None]
  - PALPITATIONS [None]
  - SEBORRHOEIC DERMATITIS [None]
  - SEBORRHOEIC KERATOSIS [None]
  - SEQUESTRECTOMY [None]
  - SKIN NEOPLASM EXCISION [None]
  - TOOTH EXTRACTION [None]
  - TRIGEMINAL NEURALGIA [None]
